FAERS Safety Report 10252752 (Version 1)
Quarter: 2014Q2

REPORT INFORMATION
  Report Type: Spontaneous
  Country: US (occurrence: None)
  Receive Date: 20140619
  Receipt Date: 20140619
  Transmission Date: 20141212
  Serious: Yes (Hospitalization)
  Sender: FDA-Public Use
  Company Number: None

PATIENT
  Age: 38 Year
  Sex: Female
  Weight: 52.2 kg

DRUGS (1)
  1. ERIBULIN MESYLATE 1.4 MG/M2 EISAI [Suspect]
     Indication: CERVIX CARCINOMA
     Dosage: 1.4 MG/M2   D1/D8 Q 21 DY CY  INTRAVENOUS
     Route: 042
     Dates: start: 20140508, end: 20140529

REACTIONS (6)
  - Abdominal pain [None]
  - Drug ineffective [None]
  - Haemoglobin decreased [None]
  - Vaginal haemorrhage [None]
  - Neutrophil count decreased [None]
  - Malignant neoplasm progression [None]
